FAERS Safety Report 7672463-X (Version None)
Quarter: 2011Q3

REPORT INFORMATION
  Report Type: 
  Country: None (occurrence: None)
  Receive Date: 20110809
  Receipt Date: 20110726
  Transmission Date: 20111222
  Serious: Yes (Death, Hospitalization)
  Sender: FDA-Public Use
  Company Number: GB-UCBSA-037338

PATIENT
  Age: 67 Year
  Sex: Male
  Weight: 73.02 kg

DRUGS (9)
  1. CIMZIA [Suspect]
     Indication: RHEUMATOID ARTHRITIS
     Route: 058
     Dates: start: 20110310, end: 20110602
  2. FOSAMAX [Concomitant]
  3. BISOPROLOL FUMARATE [Concomitant]
  4. ASCORBIC ACID [Concomitant]
  5. PREDNISOLONE [Concomitant]
  6. LEFLUNOMIDE [Concomitant]
  7. OMEPRAZOLE [Concomitant]
  8. CALCICHEW D3 [Concomitant]
  9. ACEMETACIN [Concomitant]

REACTIONS (3)
  - CREPITATIONS [None]
  - ACUTE INTERSTITIAL PNEUMONITIS [None]
  - RESPIRATORY FAILURE [None]
